FAERS Safety Report 9215270 (Version 8)
Quarter: 2014Q1

REPORT INFORMATION
  Report Type: Spontaneous
  Country: GB (occurrence: GB)
  Receive Date: 20130405
  Receipt Date: 20140210
  Transmission Date: 20141002
  Serious: Yes (Hospitalization)
  Sender: FDA-Public Use
  Company Number: GB-PFIZER INC-GBWYE364423OCT03

PATIENT
  Age: 49 Year
  Sex: Female

DRUGS (5)
  1. IBUPROFEN [Suspect]
     Dosage: UNK
     Route: 065
     Dates: start: 20030808, end: 20030808
  2. ZOTON [Suspect]
     Indication: EPILEPSY
     Dosage: UNK
     Route: 048
     Dates: start: 20030808, end: 20030808
  3. EPILIM [Suspect]
     Indication: EPILEPSY
     Dosage: 6 GRAMS
     Route: 048
     Dates: start: 20030808, end: 20030808
  4. DIAZEPAM [Suspect]
     Indication: EPILEPSY
     Dosage: UNK
     Route: 048
     Dates: start: 20030808, end: 20030808
  5. CLOZAPINE [Concomitant]
     Dosage: UNK
     Route: 048

REACTIONS (7)
  - Overdose [Recovered/Resolved]
  - Ataxia [Recovered/Resolved]
  - Feeling hot [Recovered/Resolved]
  - Hyperhidrosis [Recovered/Resolved]
  - Disturbance in attention [Recovered/Resolved]
  - Sedation [Unknown]
  - Somnolence [Recovered/Resolved]
